FAERS Safety Report 6310255-4 (Version None)
Quarter: 2009Q3

REPORT INFORMATION
  Report Type: 
  Country: None (occurrence: None)
  Receive Date: 20090814
  Receipt Date: 20090810
  Transmission Date: 20100115
  Serious: Yes (Hospitalization)
  Sender: FDA-Public Use
  Company Number: HQWYE692311OCT04

PATIENT
  Sex: Female

DRUGS (4)
  1. PREMPRO [Suspect]
  2. OGEN [Suspect]
  3. PROVERA [Suspect]
  4. CONJUGATED ESTROGENS [Suspect]

REACTIONS (2)
  - BENIGN BREAST NEOPLASM [None]
  - BREAST CANCER METASTATIC [None]
